FAERS Safety Report 8485919-7 (Version None)
Quarter: 2012Q2

REPORT INFORMATION
  Report Type: 
  Country: None (occurrence: None)
  Receive Date: 20120626
  Receipt Date: 20120612
  Transmission Date: 20120825
  Serious: Yes (Life-Threatening)
  Sender: FDA-Public Use
  Company Number: 1319996

PATIENT
  Age: 61 Year
  Sex: Female

DRUGS (1)
  1. PACLITAXEL [Suspect]
     Indication: LUNG NEOPLASM MALIGNANT
     Dosage: 250 MG, CYCLIC, INTRAVENOUS DRIP
     Route: 041
     Dates: start: 20120515, end: 20120605

REACTIONS (4)
  - OEDEMA PERIPHERAL [None]
  - SYNCOPE [None]
  - BRONCHOSTENOSIS [None]
  - FACE OEDEMA [None]
